FAERS Safety Report 8068783-X (Version None)
Quarter: 2012Q1

REPORT INFORMATION
  Report Type: 
  Country: None (occurrence: None)
  Receive Date: 20120124
  Receipt Date: 20120111
  Transmission Date: 20120608
  Serious: Yes (Other)
  Sender: FDA-Public Use
  Company Number: GB-MYLANLABS-2012S1000746

PATIENT
  Age: 1 Hour
  Sex: Male
  Weight: 5 kg

DRUGS (3)
  1. PNEUMOVAX II [Suspect]
     Route: 064
     Dates: start: 20110119, end: 20110119
  2. BUDESONIDE [Suspect]
     Route: 064
  3. LAMOTRIGINE [Suspect]
     Route: 064

REACTIONS (2)
  - FOETAL DISTRESS SYNDROME [None]
  - FOETAL EXPOSURE DURING PREGNANCY [None]
